FAERS Safety Report 9687622 (Version 1)
Quarter: 2013Q4

REPORT INFORMATION
  Report Type: Spontaneous
  Country: US (occurrence: None)
  Receive Date: 20131112
  Receipt Date: 20131112
  Transmission Date: 20140711
  Serious: Yes (Death)
  Sender: FDA-Public Use
  Company Number: SYM-2013-12447

PATIENT
  Age: 57 Year
  Sex: Male

DRUGS (13)
  1. XENAZINE [Suspect]
     Indication: HUNTINGTON^S DISEASE
     Dosage: 12.5 MG 1 TABLET EVERY MORNING, 1/2 TABLET EVERY NOON AND 1 TABLET EVERY EVENING., ORAL
     Route: 048
     Dates: start: 2013
  2. FLOMAX (MORNIFLUMATE) (MORNIFLUMATE) [Concomitant]
  3. NASONEX (MOMETASONE FUROATE0 (MOMETASONE FUROATE) [Concomitant]
  4. SINGULAIR (MONTELUKAST SODIUM) (MONTELUKAST SODIUM) [Concomitant]
  5. SPIRIVA (TIOTROPIUM BROMIDE) (TIOTROPIUM BROMIDE) [Concomitant]
  6. REMERON (MIRTAZAPINE) (MIRTAZAPINE) [Concomitant]
  7. SENNA (SENNA ALEXANDRINA) (SENNA ALEXANDRINA) [Concomitant]
  8. PRILOSEC (OMEPRAZOLE) (OMEPRAZOLE) [Concomitant]
  9. ZYPREXA (OLANZAPINE) (OLANZAPINE) [Concomitant]
  10. KLONOPIN [Concomitant]
  11. HALDOL (HALOPERIDOL) (HALOPERIDOL) [Concomitant]
  12. TYLENOL (PARACETAMOL) (PARACETAMOL) [Concomitant]
  13. AMBIEN (ZOLPIDEM TARTRATE) (ZOLPIDEM TARTRATE) [Concomitant]

REACTIONS (1)
  - Death [None]
